FAERS Safety Report 9668691 (Version 1)
Quarter: 2013Q4

REPORT INFORMATION
  Report Type: Spontaneous
  Country: US (occurrence: US)
  Receive Date: 20131105
  Receipt Date: 20131105
  Transmission Date: 20140711
  Serious: Yes (Other)
  Sender: FDA-Public Use
  Company Number: US-BAYER-2013-134018

PATIENT
  Age: 27 Year
  Sex: Female
  Weight: 55.33 kg

DRUGS (7)
  1. YAZ [Suspect]
  2. APO-SALVENT [Concomitant]
     Dosage: 2 PUFFS 4 TIMES DALILY AS NEEDED
     Route: 045
     Dates: start: 20100816
  3. MACROBID [Concomitant]
     Dosage: 100 MG, BID FOR 10 DAYS
     Route: 048
     Dates: start: 20100903
  4. APO-NAPROXEN [Concomitant]
     Dosage: 500 MG, BID TAKE 1 TABLET TWICE DAILY
     Route: 048
     Dates: start: 20101104
  5. VENTOLIN HFA [Concomitant]
     Dosage: 100 ?G, QID DAILY
     Route: 045
     Dates: start: 20100920, end: 20100928
  6. BUSCOPAN [Concomitant]
     Dosage: 10 MG, QID, PRN
     Route: 048
  7. DEMEROL [Concomitant]
     Indication: PAIN
     Dosage: 50 MG, EVERY THREE HOURS PRN

REACTIONS (1)
  - Cholecystitis chronic [None]
